FAERS Safety Report 13543981 (Version 1)
Quarter: 2017Q2

REPORT INFORMATION
  Report Type: Spontaneous
  Country: US (occurrence: US)
  Receive Date: 20170515
  Receipt Date: 20170515
  Transmission Date: 20170830
  Serious: No
  Sender: FDA-Public Use
  Company Number: US-ASTRAZENECA-2017SE48139

PATIENT
  Age: 91 Year
  Sex: Male
  Weight: 77.1 kg

DRUGS (5)
  1. SEROQUEL [Suspect]
     Active Substance: QUETIAPINE FUMARATE
     Indication: PROPHYLAXIS
     Dosage: 12.5MG IN THE MORNING AND 25MG AT NIGHT.
     Route: 048
     Dates: start: 20170424, end: 20170503
  2. DIABETES MEDICATION [Concomitant]
     Active Substance: UNSPECIFIED INGREDIENT
     Indication: DIABETES MELLITUS
  3. SEROQUEL [Suspect]
     Active Substance: QUETIAPINE FUMARATE
     Indication: PROPHYLAXIS
     Route: 048
     Dates: start: 20170407, end: 20170410
  4. SEROQUEL [Suspect]
     Active Substance: QUETIAPINE FUMARATE
     Indication: PROPHYLAXIS
     Dosage: 12.5 MG IN THE MORNING AND AFTERNOON AND 25MG AT NIGHT
     Route: 048
     Dates: start: 20170410, end: 20170424
  5. VITAMINS NOS [Concomitant]
     Active Substance: VITAMINS

REACTIONS (3)
  - Dementia [Unknown]
  - Lethargy [Recovering/Resolving]
  - Feeling abnormal [Recovered/Resolved]

NARRATIVE: CASE EVENT DATE: 20170423
